FAERS Safety Report 16690712 (Version 6)
Quarter: 2020Q4

REPORT INFORMATION
  Report Type: Spontaneous
  Country: DE (occurrence: DE)
  Receive Date: 20190811
  Receipt Date: 20201007
  Transmission Date: 20210113
  Serious: Yes (Death, Other)
  Sender: FDA-Public Use
  Company Number: PHHY2019DE143787

PATIENT
  Age: 54 Year
  Sex: Female
  Weight: 52 kg

DRUGS (2)
  1. LEVETIRACETAM. [Concomitant]
     Active Substance: LEVETIRACETAM
     Indication: PROPHYLAXIS
     Dosage: 1000 MG, QD
     Route: 048
     Dates: start: 20190605
  2. KYMRIAH [Suspect]
     Active Substance: TISAGENLECLEUCEL
     Indication: DIFFUSE LARGE B-CELL LYMPHOMA RECURRENT
     Dosage: 1.9069 X 10E8 CD19 CAR-T CELLS (ONCE/SINGLE)
     Route: 042
     Dates: start: 20190611, end: 20190611

REACTIONS (19)
  - Atelectasis [Unknown]
  - Blood lactate dehydrogenase increased [Unknown]
  - White blood cell count decreased [Unknown]
  - Pneumonia [Recovered/Resolved]
  - Cough [Unknown]
  - Visual acuity reduced [Recovered/Resolved]
  - Cytokine release syndrome [Recovered/Resolved]
  - Pyrexia [Recovered/Resolved]
  - Papilloedema [Recovered/Resolved]
  - Eye inflammation [Recovered/Resolved]
  - Febrile neutropenia [Recovered/Resolved]
  - Diffuse large B-cell lymphoma [Unknown]
  - Malignant neoplasm progression [Unknown]
  - Pleural effusion [Unknown]
  - Diffuse large B-cell lymphoma recurrent [Fatal]
  - Infection [Unknown]
  - Tachycardia [Recovered/Resolved]
  - Drug ineffective [Unknown]
  - C-reactive protein increased [Unknown]

NARRATIVE: CASE EVENT DATE: 20190612
